FAERS Safety Report 5573105-X (Version None)
Quarter: 2007Q4

REPORT INFORMATION
  Report Type: 
  Country: None (occurrence: None)
  Receive Date: 20071220
  Receipt Date: 20071220
  Transmission Date: 20080405
  Serious: Yes (Other)
  Sender: FDA-Public Use
  Company Number: None

PATIENT
  Age: 53 Year
  Sex: Male
  Weight: 113.8529 kg

DRUGS (1)
  1. ZICAM TABLETS CHERRY [Suspect]
     Indication: NASOPHARYNGITIS
     Dosage: ONE CHEWABLE TABLET 8PM, 11PM, 5AM ORAL
     Route: 048
     Dates: start: 20071209, end: 20071210

REACTIONS (1)
  - LIP SWELLING [None]
